FAERS Safety Report 10869057 (Version 2)
Quarter: 2015Q2

REPORT INFORMATION
  Report Type: Spontaneous
  Country: US (occurrence: US)
  Receive Date: 20150225
  Receipt Date: 20150402
  Transmission Date: 20150821
  Serious: Yes (Hospitalization)
  Sender: FDA-Public Use
  Company Number: CHPA2015US002789

PATIENT
  Age: 80 Year
  Sex: Female

DRUGS (2)
  1. VOLTAREN [Suspect]
     Active Substance: DICLOFENAC SODIUM
     Indication: ARTHRITIS
     Dosage: 2 G, QD PRN
     Route: 065
     Dates: start: 2013, end: 201501
  2. VOLTAREN [Suspect]
     Active Substance: DICLOFENAC SODIUM
     Indication: LUMBAR SPINAL STENOSIS
     Dosage: 2 G, QW TO BACK
     Route: 061

REACTIONS (6)
  - Inappropriate schedule of drug administration [Unknown]
  - Diverticulitis [Recovering/Resolving]
  - Incorrect dose administered [Unknown]
  - Drug administered at inappropriate site [Unknown]
  - Off label use [Unknown]
  - Peptic ulcer [Recovering/Resolving]

NARRATIVE: CASE EVENT DATE: 2013
